FAERS Safety Report 9512669 (Version 2)
Quarter: 2014Q1

REPORT INFORMATION
  Report Type: Spontaneous
  Country: US (occurrence: None)
  Receive Date: 20130305
  Receipt Date: 20140306
  Transmission Date: 20141002
  Serious: Yes (Other)
  Sender: FDA-Public Use
  Company Number: 163-21880-12090717

PATIENT
  Age: 86 Year
  Sex: Female
  Weight: 45.81 kg

DRUGS (4)
  1. REVLIMID [Suspect]
     Indication: PLASMA CELL MYELOMA
     Dosage: 21 IN 21 D
     Route: 048
     Dates: start: 20101229
  2. AREDIA (PAMIDRONATE  DISODIUM) (UNKNOWN) [Concomitant]
  3. DEXAMETHASONE (DEXAMETHASONE) (UNKNOWN) [Concomitant]
  4. AVAPRO (IRBESARTAN) (UNKNOWN) [Concomitant]

REACTIONS (3)
  - Haemoglobin decreased [None]
  - Pain in extremity [None]
  - Swelling [None]
